FAERS Safety Report 9263287 (Version 1)
Quarter: 2013Q2

REPORT INFORMATION
  Report Type: Spontaneous
  Country: US (occurrence: None)
  Receive Date: 20130429
  Receipt Date: 20130429
  Transmission Date: 20140414
  Serious: Yes (Life-Threatening, Hospitalization, Disabling)
  Sender: FDA-Public Use
  Company Number: None

PATIENT
  Age: 66 Year
  Sex: Female
  Weight: 56.7 kg

DRUGS (2)
  1. ALLOPURINOL 300 MG TAB NOR [Suspect]
     Indication: GOUT
     Dosage: 1 TAB - DAILY
     Dates: start: 20121220, end: 20130122
  2. ALLOPURINOL 300 MG TAB NOR [Suspect]
     Indication: GOUT
     Dosage: 1 TAB - DAILY
     Dates: start: 20121220, end: 20130122

REACTIONS (2)
  - Stevens-Johnson syndrome [None]
  - Type 1 diabetes mellitus [None]
